FAERS Safety Report 12660633 (Version 2)
Quarter: 2016Q3

REPORT INFORMATION
  Report Type: Spontaneous
  Country: US (occurrence: US)
  Receive Date: 20160817
  Receipt Date: 20160901
  Transmission Date: 20161109
  Serious: No
  Sender: FDA-Public Use
  Company Number: US-RELYPSA-RLY2016001023

PATIENT
  Age: 56 Year
  Sex: Male

DRUGS (17)
  1. LIDODERM [Concomitant]
     Active Substance: LIDOCAINE
  2. NUCYNTA [Concomitant]
     Active Substance: TAPENTADOL HYDROCHLORIDE
  3. PROPRANOLOL [Concomitant]
     Active Substance: PROPRANOLOL\PROPRANOLOL HYDROCHLORIDE
  4. AMITRIPTYLIN [Concomitant]
     Active Substance: AMITRIPTYLINE
  5. VITAMIN B12 [Concomitant]
     Active Substance: CYANOCOBALAMIN
  6. BUPROPION. [Concomitant]
     Active Substance: BUPROPION
  7. DIAZEPAM. [Concomitant]
     Active Substance: DIAZEPAM
  8. MAGNESIUM [Concomitant]
     Active Substance: MAGNESIUM
  9. ONDANSETRON [Concomitant]
     Active Substance: ONDANSETRON
  10. VELTASSA [Suspect]
     Active Substance: PATIROMER
     Indication: HYPERKALAEMIA
     Dosage: 8.4 MG, QD
     Route: 048
     Dates: start: 20160525
  11. CALCIUM [Concomitant]
     Active Substance: CALCIUM
  12. TRAMADOL. [Concomitant]
     Active Substance: TRAMADOL
  13. VITAMIN D3 [Concomitant]
     Active Substance: CHOLECALCIFEROL
  14. PHOSLO [Concomitant]
     Active Substance: CALCIUM ACETATE
  15. HYDROXYZINE PAM [Concomitant]
     Active Substance: HYDROXYZINE PAMOATE
  16. PERCOCET                           /00446701/ [Concomitant]
     Active Substance: ACETAMINOPHEN\OXYCODONE HYDROCHLORIDE\OXYCODONE TEREPHTHALATE
  17. TRAZODONE [Concomitant]
     Active Substance: TRAZODONE HYDROCHLORIDE

REACTIONS (5)
  - Bone pain [Recovering/Resolving]
  - Swelling face [Recovering/Resolving]
  - Fatigue [Unknown]
  - Abdominal pain [Recovering/Resolving]
  - Somnolence [Unknown]

NARRATIVE: CASE EVENT DATE: 20160525
